FAERS Safety Report 14776532 (Version 2)
Quarter: 2018Q3

REPORT INFORMATION
  Report Type: Spontaneous
  Country: BE (occurrence: BE)
  Receive Date: 20180418
  Receipt Date: 20180830
  Transmission Date: 20181010
  Serious: Yes (Hospitalization, Other)
  Sender: FDA-Public Use
  Company Number: PHHY2015BE177704

PATIENT
  Age: 81 Year
  Sex: Female
  Weight: 69 kg

DRUGS (6)
  1. PACLITAXEL. [Suspect]
     Active Substance: PACLITAXEL
     Indication: OVARIAN CANCER
     Dosage: 60 MG/M2, QW
     Route: 042
     Dates: start: 20151002
  2. AVASTIN [Suspect]
     Active Substance: BEVACIZUMAB
     Indication: OVARIAN CANCER
     Dosage: 1035 MG, Q3W
     Route: 042
     Dates: start: 20151002
  3. AVASTIN [Suspect]
     Active Substance: BEVACIZUMAB
     Dosage: 975 MG, Q3W
     Route: 042
     Dates: start: 20160304, end: 20160415
  4. CARBOPLATIN. [Suspect]
     Active Substance: CARBOPLATIN
     Indication: OVARIAN CANCER
     Dosage: 1 OT, Q3W
     Route: 042
     Dates: start: 20151002, end: 20160415
  5. PACLITAXEL. [Suspect]
     Active Substance: PACLITAXEL
     Dosage: 60 MG/M2, QW
     Route: 042
     Dates: start: 20160129, end: 20160415
  6. AVASTIN [Suspect]
     Active Substance: BEVACIZUMAB
     Dosage: 1006 MG, Q3W
     Route: 042
     Dates: start: 20160122

REACTIONS (6)
  - Hypomagnesaemia [Not Recovered/Not Resolved]
  - Tumour haemorrhage [Recovered/Resolved]
  - Hypertension [Recovered/Resolved]
  - Anaemia [Recovered/Resolved]
  - Deep vein thrombosis [Recovered/Resolved]
  - Hyperkalaemia [Recovered/Resolved]

NARRATIVE: CASE EVENT DATE: 20151002
